FAERS Safety Report 12982534 (Version 1)
Quarter: 2016Q4

REPORT INFORMATION
  Report Type: Spontaneous
  Country: US (occurrence: US)
  Receive Date: 20161128
  Receipt Date: 20161128
  Transmission Date: 20170207
  Serious: Yes (Other)
  Sender: FDA-Public Use
  Company Number: None

PATIENT
  Age: 34 Year
  Sex: Female
  Weight: 59 kg

DRUGS (1)
  1. DALVANCE [Suspect]
     Active Substance: DALBAVANCIN
     Indication: STAPHYLOCOCCAL OSTEOMYELITIS
     Route: 042

REACTIONS (3)
  - Back pain [None]
  - Pruritus generalised [None]
  - Throat irritation [None]

NARRATIVE: CASE EVENT DATE: 20161123
